FAERS Safety Report 22066634 (Version 1)
Quarter: 2023Q1

REPORT INFORMATION
  Report Type: Other
  Country: JP (occurrence: None)
  Receive Date: 20230306
  Receipt Date: 20230306
  Transmission Date: 20230417
  Serious: Yes (Other)
  Sender: FDA-Public Use
  Company Number: JP-Merck Healthcare KGaA-9386523

PATIENT
  Age: 78 Year
  Sex: Male

DRUGS (1)
  1. BAVENCIO [Suspect]
     Active Substance: AVELUMAB
     Indication: Metastatic carcinoma of the bladder
     Route: 041

REACTIONS (2)
  - Interstitial lung disease [Recovering/Resolving]
  - Lymphadenopathy [Recovering/Resolving]
